FAERS Safety Report 9614706 (Version 2)
Quarter: 2014Q1

REPORT INFORMATION
  Report Type: Spontaneous
  Country: AR (occurrence: AR)
  Receive Date: 20131011
  Receipt Date: 20140204
  Transmission Date: 20141002
  Serious: Yes (Other)
  Sender: FDA-Public Use
  Company Number: AR-AMGEN-ARGSP2013071626

PATIENT
  Age: 61 Year
  Sex: Female

DRUGS (8)
  1. ENBREL [Suspect]
     Indication: RHEUMATOID ARTHRITIS
     Dosage: 50 MG, WEEKLY
     Route: 065
     Dates: start: 20110720
  2. PANTOPRAZOL [Concomitant]
     Indication: GASTRITIS
     Dosage: UNK
  3. LOTRIAL                            /00574902/ [Concomitant]
     Indication: HYPERTENSION
     Dosage: UNK
  4. METICORTEN [Concomitant]
     Indication: RHEUMATOID ARTHRITIS
     Dosage: UNK
  5. CALCIUM [Concomitant]
     Indication: RHEUMATOID ARTHRITIS
     Dosage: UNK
  6. ASPIRINETTA [Concomitant]
     Indication: HYPERTENSION
     Dosage: UNK
  7. TRYPTANOL                          /00002202/ [Concomitant]
     Indication: PAIN
     Dosage: UNK
  8. ALENDRONATO [Concomitant]
     Indication: OSTEOPOROSIS
     Dosage: UNK

REACTIONS (5)
  - Hip fracture [Recovered/Resolved]
  - Pain [Not Recovered/Not Resolved]
  - Fall [Recovered/Resolved]
  - Rib fracture [Recovering/Resolving]
  - Emphysema [Not Recovered/Not Resolved]
